FAERS Safety Report 20174095 (Version 1)
Quarter: 2021Q4

REPORT INFORMATION
  Report Type: Spontaneous
  Country: CN (occurrence: CN)
  Receive Date: 20211213
  Receipt Date: 20211213
  Transmission Date: 20220303
  Serious: Yes (Hospitalization)
  Sender: FDA-Public Use
  Company Number: CN-JNJFOC-20211207785

PATIENT
  Age: 57 Year
  Sex: Female
  Weight: 65 kg

DRUGS (4)
  1. TYLENOL 8HR [Suspect]
     Active Substance: ACETAMINOPHEN
     Indication: Pyrexia
     Route: 048
     Dates: start: 20211102, end: 20211103
  2. HERBALS [Suspect]
     Active Substance: HERBALS
     Indication: Neck pain
     Route: 048
     Dates: start: 20211025, end: 20211102
  3. MOXIFLOXACIN [Concomitant]
     Active Substance: MOXIFLOXACIN
     Indication: Pyrexia
     Route: 048
     Dates: start: 20211102, end: 20211104
  4. DIOSMIN [Concomitant]
     Active Substance: DIOSMIN
     Indication: Neck pain
     Route: 048
     Dates: start: 20211025, end: 20211102

REACTIONS (4)
  - Alopecia areata [Recovering/Resolving]
  - Pyrexia [Recovering/Resolving]
  - Hepatic function abnormal [Recovering/Resolving]
  - Rash [Recovering/Resolving]

NARRATIVE: CASE EVENT DATE: 20211102
